FAERS Safety Report 9112613 (Version 1)
Quarter: 2013Q1

REPORT INFORMATION
  Report Type: Spontaneous
  Country: US (occurrence: US)
  Receive Date: 20130211
  Receipt Date: 20130211
  Transmission Date: 20140127
  Serious: Yes (Hospitalization, Other)
  Sender: FDA-Public Use
  Company Number: PHHY2012US029815

PATIENT
  Age: 72 Year
  Sex: Female

DRUGS (1)
  1. HYDRALAZINE [Suspect]

REACTIONS (3)
  - Failure to thrive [Unknown]
  - Lupus-like syndrome [Unknown]
  - Abdominal pain [Unknown]
